FAERS Safety Report 14023616 (Version 1)
Quarter: 2017Q3

REPORT INFORMATION
  Report Type: Spontaneous
  Country: CN (occurrence: CN)
  Receive Date: 20170929
  Receipt Date: 20170929
  Transmission Date: 20171128
  Serious: Yes (Hospitalization)
  Sender: FDA-Public Use
  Company Number: CN-BAYER-2017-181437

PATIENT
  Sex: Male

DRUGS (1)
  1. STIVARGA [Suspect]
     Active Substance: REGORAFENIB
     Dosage: DAILY DOSE 160 MG
     Dates: end: 201709

REACTIONS (9)
  - Confusional state [None]
  - Pruritus [None]
  - Loss of consciousness [None]
  - General physical health deterioration [None]
  - Somnolence [None]
  - Rash macular [None]
  - Hypersensitivity [None]
  - Erythema [None]
  - Asthenia [None]
